FAERS Safety Report 5397655-4 (Version None)
Quarter: 2007Q3

REPORT INFORMATION
  Report Type: 
  Country: None (occurrence: None)
  Receive Date: 20070726
  Receipt Date: 20070724
  Transmission Date: 20080115
  Serious: Yes (Death, Life-Threatening, Hospitalization, Other)
  Sender: FDA-Public Use
  Company Number: PHEH2005US10405

PATIENT
  Age: 49 Year
  Sex: Male

DRUGS (9)
  1. BIAXIN XL [Suspect]
     Dates: start: 20050412
  2. ANTIHYPERTENSIVES [Concomitant]
  3. LAMISIL [Suspect]
     Indication: TINEA PEDIS
     Dosage: 250 MG, QD
     Route: 048
     Dates: start: 20050120, end: 20050501
  4. LOTREL [Concomitant]
  5. NIZORAL [Concomitant]
  6. DECADRON [Concomitant]
  7. ASTELIN [Concomitant]
     Route: 045
  8. NASONEX [Concomitant]
     Route: 045
  9. FLONASE [Concomitant]
     Route: 045

REACTIONS (50)
  - ABDOMINAL PAIN [None]
  - ANAEMIA [None]
  - ANOREXIA [None]
  - APPETITE DISORDER [None]
  - ASTHENIA [None]
  - ASTHMA [None]
  - BIOPSY LIVER [None]
  - BLOOD CREATININE INCREASED [None]
  - BRONCHITIS CHRONIC [None]
  - CHEST DISCOMFORT [None]
  - CHILLS [None]
  - CHROMATURIA [None]
  - CHRONIC HEPATIC FAILURE [None]
  - COUGH [None]
  - DRUG INTERACTION [None]
  - DRY MOUTH [None]
  - DYSPNOEA [None]
  - ENTEROCOCCAL SEPSIS [None]
  - EYE IRRITATION [None]
  - FATIGUE [None]
  - FOOD INTOLERANCE [None]
  - HAEMATOCHEZIA [None]
  - HAEMATOCRIT DECREASED [None]
  - HAEMOGLOBIN DECREASED [None]
  - HEPATIC ENZYME INCREASED [None]
  - HEPATIC PAIN [None]
  - HEPATORENAL SYNDROME [None]
  - HICCUPS [None]
  - HYPERBILIRUBINAEMIA [None]
  - HYPOTENSION [None]
  - JAUNDICE [None]
  - LEUKOPLAKIA [None]
  - LIVER DISORDER [None]
  - LIVER TRANSPLANT [None]
  - NASAL CONGESTION [None]
  - NASOPHARYNGITIS [None]
  - NAUSEA [None]
  - OCULAR HYPERAEMIA [None]
  - OCULAR ICTERUS [None]
  - PHARYNGITIS [None]
  - PHARYNGOLARYNGEAL PAIN [None]
  - PRURITUS [None]
  - PYREXIA [None]
  - RENAL FAILURE ACUTE [None]
  - RHINITIS ALLERGIC [None]
  - SPUTUM DISCOLOURED [None]
  - TONGUE COATED [None]
  - TONGUE DISCOLOURATION [None]
  - VOMITING [None]
  - WHEEZING [None]
